FAERS Safety Report 25897646 (Version 1)
Quarter: 2025Q4

REPORT INFORMATION
  Report Type: Spontaneous
  Country: EU (occurrence: EU)
  Receive Date: 20251008
  Receipt Date: 20251008
  Transmission Date: 20260117
  Serious: Yes (Disabling, Other)
  Sender: DAIICHI
  Company Number: EU-AstraZeneca-CH-00960132A

PATIENT
  Age: 55 Year
  Sex: Female

DRUGS (1)
  1. TRASTUZUMAB DERUXTECAN [Suspect]
     Active Substance: TRASTUZUMAB DERUXTECAN
     Indication: HER2 positive breast cancer
     Dosage: 5.4 MG/KG, ONCE EVERY 3 WK
     Route: 042
     Dates: start: 20240919

REACTIONS (6)
  - Asthenia [Unknown]
  - Fatigue [Unknown]
  - Gastrointestinal oedema [Unknown]
  - Neutropenia [Unknown]
  - Decreased appetite [Unknown]
  - Splenic lesion [Unknown]
